FAERS Safety Report 8554392-2 (Version None)
Quarter: 2012Q3

REPORT INFORMATION
  Report Type: 
  Country: None (occurrence: None)
  Receive Date: 20120731
  Receipt Date: 20120723
  Transmission Date: 20120928
  Serious: Yes (Hospitalization)
  Sender: FDA-Public Use
  Company Number: US-009507513-1207USA010548

PATIENT

DRUGS (7)
  1. ZOCOR [Suspect]
     Dosage: 40 MG, QD
     Route: 048
  2. ASPIRIN [Concomitant]
     Dosage: 75 MG, QD
     Route: 048
  3. ZOLPIDEM TATRATE [Concomitant]
     Dosage: 10 MG, PRN
     Route: 048
  4. RAMIPRIL [Concomitant]
     Dosage: 5 MG, QD
     Route: 048
  5. CENTYL [Concomitant]
     Dosage: 5 MG, QD
     Route: 048
  6. IMATINIB MESYLATE [Interacting]
     Dosage: 200 MG, QD
     Route: 048
  7. NEXIUM [Concomitant]

REACTIONS (11)
  - DRUG INTERACTION [None]
  - MUSCLE ENZYME INCREASED [None]
  - GAIT DISTURBANCE [None]
  - MYOGLOBIN BLOOD INCREASED [None]
  - MUSCULAR WEAKNESS [None]
  - BLOOD CREATINE PHOSPHOKINASE INCREASED [None]
  - RHABDOMYOLYSIS [None]
  - CARDIOTOXICITY [None]
  - ALANINE AMINOTRANSFERASE INCREASED [None]
  - HEPATIC ENZYME ABNORMAL [None]
  - MYOSITIS [None]
